FAERS Safety Report 7383783-0 (Version None)
Quarter: 2011Q1

REPORT INFORMATION
  Report Type: 
  Country: None (occurrence: None)
  Receive Date: 20110322
  Receipt Date: 20110308
  Transmission Date: 20110831
  Serious: Yes (Hospitalization)
  Sender: FDA-Public Use
  Company Number: CS# 110308025

PATIENT
  Age: 10 Year
  Sex: Female

DRUGS (1)
  1. LIDOCAINE [Suspect]
     Indication: POSTOPERATIVE CARE
     Dosage: 4 SITES ON HAND;
     Dates: start: 20110308

REACTIONS (5)
  - VISUAL IMPAIRMENT [None]
  - PRESYNCOPE [None]
  - BLOOD PRESSURE DECREASED [None]
  - GAIT DISTURBANCE [None]
  - PALLOR [None]
